FAERS Safety Report 9946531 (Version 1)
Quarter: 2014Q1

REPORT INFORMATION
  Report Type: Report from Study
  Country: US (occurrence: US)
  Receive Date: 20140303
  Receipt Date: 20140303
  Transmission Date: 20141002
  Serious: No
  Sender: FDA-Public Use
  Company Number: US-ABBVIE-13P-163-1058485-00

PATIENT
  Age: 59 Year
  Sex: Female

DRUGS (11)
  1. HUMIRA [Suspect]
     Indication: RHEUMATOID ARTHRITIS
     Dates: start: 201101, end: 201201
  2. LISINOPRIL [Concomitant]
     Indication: BLOOD PRESSURE
     Route: 048
  3. PREDNISONE [Concomitant]
     Indication: RHEUMATOID ARTHRITIS
     Route: 048
  4. FUROSEMIDE [Concomitant]
     Indication: DIURETIC THERAPY
     Dosage: 20 MG DAILY
     Route: 048
  5. TRAMADOL [Concomitant]
     Indication: RHEUMATOID ARTHRITIS
     Route: 048
  6. FOLIC ACID [Concomitant]
     Indication: RHEUMATOID ARTHRITIS
     Dosage: 1 MG DAILY
     Route: 048
  7. METHOTREXATE [Concomitant]
     Indication: PRODUCT USED FOR UNKNOWN INDICATION
     Dosage: 6 TABS WEEKLY
     Route: 048
  8. SIMVASTATIN [Concomitant]
     Indication: BLOOD CHOLESTEROL
     Dosage: 20 MG DAILY
     Route: 048
  9. COREG [Concomitant]
     Indication: BLOOD CHOLESTEROL
     Dosage: DAILY
     Route: 048
  10. SINGULAR [Concomitant]
     Indication: ASTHMA
     Dosage: 10 MG DAILY
     Route: 048
  11. ADVAIR [Concomitant]
     Indication: ASTHMA
     Dosage: PUFFS 100/50, 1 PUFF IN AM AND 1 PUFF IN PM

REACTIONS (6)
  - Drug dose omission [Not Recovered/Not Resolved]
  - Pain [Not Recovered/Not Resolved]
  - Hypertension [Unknown]
  - Cardiac murmur [Unknown]
  - Heart valve incompetence [Unknown]
  - Rheumatoid arthritis [Unknown]
